FAERS Safety Report 8376507-1 (Version None)
Quarter: 2012Q2

REPORT INFORMATION
  Report Type: 
  Country: None (occurrence: None)
  Receive Date: 20120518
  Receipt Date: 20120510
  Transmission Date: 20120825
  Serious: Yes (Death)
  Sender: FDA-Public Use
  Company Number: ADR-2012-00319

PATIENT
  Age: 79 Year

DRUGS (1)
  1. BACLOFEN [Suspect]
     Indication: CEREBRAL PALSY

REACTIONS (7)
  - MUSCLE SPASTICITY [None]
  - CONDITION AGGRAVATED [None]
  - PNEUMONIA ASPIRATION [None]
  - DYSPHAGIA [None]
  - SOMNOLENCE [None]
  - RESPIRATORY FAILURE [None]
  - DISEASE COMPLICATION [None]
